FAERS Safety Report 4593353-5 (Version None)
Quarter: 2005Q1

REPORT INFORMATION
  Report Type: 
  Country: None (occurrence: None)
  Receive Date: 20050224
  Receipt Date: 20040428
  Transmission Date: 20050727
  Serious: No
  Sender: FDA-Public Use
  Company Number: US-BRISTOL-MYERS SQUIBB COMPANY-12579330

PATIENT
  Age: 22 Year
  Sex: Female

DRUGS (5)
  1. EXCEDRIN (MIGRAINE) [Suspect]
  2. TYLENOL (CAPLET) [Concomitant]
  3. MUSCLE RELAXANT [Concomitant]
  4. VICODIN [Concomitant]
  5. NAPROSYN [Concomitant]

REACTIONS (5)
  - DIZZINESS [None]
  - DRUG INEFFECTIVE [None]
  - HYPOAESTHESIA [None]
  - NAUSEA [None]
  - VISUAL DISTURBANCE [None]
